FAERS Safety Report 22525537 (Version 1)
Quarter: 2023Q2

REPORT INFORMATION
  Report Type: Report from Study
  Country: US (occurrence: US)
  Receive Date: 20230606
  Receipt Date: 20230606
  Transmission Date: 20230722
  Serious: Yes (Hospitalization)
  Sender: FDA-Public Use
  Company Number: US-BIOGEN-2023BI01208185

PATIENT
  Sex: Female

DRUGS (1)
  1. TECFIDERA [Suspect]
     Active Substance: DIMETHYL FUMARATE
     Indication: Multiple sclerosis
     Route: 050
     Dates: start: 20170626, end: 202011

REACTIONS (3)
  - COVID-19 pneumonia [Unknown]
  - Nephrolithiasis [Unknown]
  - Nausea [Unknown]

NARRATIVE: CASE EVENT DATE: 20200101
